FAERS Safety Report 9439929 (Version 1)
Quarter: 2013Q3

REPORT INFORMATION
  Report Type: Report from Study
  Country: FR (occurrence: FR)
  Receive Date: 20130805
  Receipt Date: 20130805
  Transmission Date: 20140515
  Serious: Yes (Other)
  Sender: FDA-Public Use
  Company Number: FR-GENZYME-CAMP-1003056

PATIENT
  Age: 82 Year
  Sex: Male

DRUGS (5)
  1. CAMPATH [Suspect]
     Indication: CHRONIC LYMPHOCYTIC LEUKAEMIA
     Dosage: 10 MG, 3X/W
     Route: 058
     Dates: start: 20130315, end: 20130318
  2. CAMPATH [Suspect]
     Dosage: 10 MG, 3X/W
     Route: 058
     Dates: end: 20130426
  3. BACTRIM [Concomitant]
     Indication: INFECTION PROPHYLAXIS
     Dosage: UNK
     Route: 065
     Dates: start: 20130315
  4. LEDERFOLIN [Concomitant]
     Indication: INFECTION PROPHYLAXIS
     Dosage: 25 *3 TIMES PER WEEK
     Route: 065
     Dates: start: 20130315
  5. ZELITREX [Concomitant]
     Indication: INFECTION PROPHYLAXIS
     Dosage: 500 MG, BID
     Route: 065
     Dates: start: 20130315

REACTIONS (3)
  - Drug ineffective [Unknown]
  - Pyrexia [Recovered/Resolved]
  - Injection site reaction [Recovered/Resolved]
